FAERS Safety Report 16757162 (Version 4)
Quarter: 2020Q1

REPORT INFORMATION
  Report Type: Spontaneous
  Country: US (occurrence: US)
  Receive Date: 20190829
  Receipt Date: 20200224
  Transmission Date: 20200409
  Serious: Yes (Other)
  Sender: FDA-Public Use
  Company Number: US-VIFOR (INTERNATIONAL) INC.-VIT-2019-08322

PATIENT
  Age: 78 Year
  Sex: Male
  Weight: 89.89 kg

DRUGS (1)
  1. VELTASSA [Suspect]
     Active Substance: PATIROMER
     Indication: HYPERKALAEMIA
     Dosage: EVERY OTHER DAY
     Route: 048
     Dates: start: 20160325

REACTIONS (5)
  - Neoplasm malignant [Unknown]
  - Treatment noncompliance [Unknown]
  - Back disorder [Unknown]
  - Thrombosis [Recovered/Resolved]
  - Off label use [Unknown]

NARRATIVE: CASE EVENT DATE: 20160325
